FAERS Safety Report 9114951 (Version 1)
Quarter: 2013Q1

REPORT INFORMATION
  Report Type: Spontaneous
  Country: FR (occurrence: FR)
  Receive Date: 20130128
  Receipt Date: 20130128
  Transmission Date: 20140127
  Serious: Yes (Life-Threatening, Hospitalization, Other)
  Sender: FDA-Public Use
  Company Number: FR-ELI_LILLY_AND_COMPANY-FR201301004609

PATIENT
  Age: 56 None
  Sex: Male

DRUGS (22)
  1. HUMULIN 70/30 [Suspect]
     Indication: TYPE 1 DIABETES MELLITUS
     Dosage: UNK, UNKNOWN
     Route: 058
     Dates: end: 20121019
  2. HUMULIN 70/30 [Suspect]
     Dosage: UNK
     Route: 058
     Dates: start: 20121031
  3. INSULIN [Concomitant]
  4. DEPAMIDE [Concomitant]
  5. EPINITRIL [Concomitant]
  6. KARDEGIC                                /FRA/ [Concomitant]
  7. PLAVIX [Concomitant]
  8. KAYEXALATE [Concomitant]
  9. SERETIDE [Concomitant]
  10. COZAAR [Concomitant]
  11. TRIATEC                                 /FRA/ [Concomitant]
  12. LASILIX [Concomitant]
  13. CITALOPRAM [Concomitant]
  14. SPIRIVA [Concomitant]
  15. METHADONE [Concomitant]
  16. MESTINON [Concomitant]
     Dosage: 60 MG, UNK
  17. MOTILIUM [Concomitant]
  18. OGAST [Concomitant]
  19. EFFERALGAN                         /00020001/ [Concomitant]
  20. IMOVANE [Concomitant]
  21. RIVOTRIL [Concomitant]
  22. ALCOHOL [Concomitant]

REACTIONS (8)
  - Hypoglycaemic coma [Recovered/Resolved]
  - Lung disorder [Recovered/Resolved]
  - Oxygen saturation decreased [Unknown]
  - Alcohol poisoning [Unknown]
  - Vomiting [Unknown]
  - Dysarthria [Unknown]
  - Disturbance in attention [Unknown]
  - Disorientation [Not Recovered/Not Resolved]
